FAERS Safety Report 18229016 (Version 4)
Quarter: 2023Q2

REPORT INFORMATION
  Report Type: Spontaneous
  Country: US (occurrence: US)
  Receive Date: 20200903
  Receipt Date: 20230623
  Transmission Date: 20230722
  Serious: Yes (Other)
  Sender: FDA-Public Use
  Company Number: US-GILEAD-2020-0493171

PATIENT
  Age: 50 Year
  Sex: Male

DRUGS (3)
  1. TRUVADA [Suspect]
     Active Substance: EMTRICITABINE\TENOFOVIR DISOPROXIL FUMARATE
     Indication: HIV infection
     Dosage: UNK
     Route: 048
     Dates: start: 2004, end: 201812
  2. SYMTUZA [Concomitant]
     Active Substance: COBICISTAT\DARUNAVIR\EMTRICITABINE\TENOFOVIR ALAFENAMIDE
  3. BIKTARVY [Concomitant]
     Active Substance: BICTEGRAVIR SODIUM\EMTRICITABINE\TENOFOVIR ALAFENAMIDE FUMARATE

REACTIONS (6)
  - Osteonecrosis [Not Recovered/Not Resolved]
  - Tooth loss [Not Recovered/Not Resolved]
  - Bone loss [Not Recovered/Not Resolved]
  - Dental caries [Not Recovered/Not Resolved]
  - Bone density decreased [Unknown]
  - Lymphadenopathy [Recovered/Resolved]

NARRATIVE: CASE EVENT DATE: 20200619
